FAERS Safety Report 5307447-X (Version None)
Quarter: 2007Q2

REPORT INFORMATION
  Report Type: 
  Country: None (occurrence: None)
  Receive Date: 20070425
  Receipt Date: 20070419
  Transmission Date: 20071010
  Serious: Yes (Other)
  Sender: FDA-Public Use
  Company Number: ATWYE434112APR07

PATIENT
  Weight: 34.2 kg

DRUGS (1)
  1. REFACTO [Suspect]
     Dosage: 2250.0 IU PER WEEK

REACTIONS (1)
  - FACTOR VIII INHIBITION [None]
